FAERS Safety Report 14845264 (Version 1)
Quarter: 2018Q2

REPORT INFORMATION
  Report Type: Spontaneous
  Country: US (occurrence: US)
  Receive Date: 20180504
  Receipt Date: 20180504
  Transmission Date: 20180711
  Serious: Yes (Other)
  Sender: FDA-Public Use
  Company Number: US-ABBVIE-18K-163-2339998-00

PATIENT
  Age: 49 Year
  Sex: Female
  Weight: 73.55 kg

DRUGS (1)
  1. HUMIRA [Suspect]
     Active Substance: ADALIMUMAB
     Indication: RHEUMATOID ARTHRITIS
     Route: 058
     Dates: start: 201508, end: 20180419

REACTIONS (10)
  - Systemic lupus erythematosus [Not Recovered/Not Resolved]
  - Fatigue [Recovering/Resolving]
  - Butterfly rash [Recovered/Resolved]
  - Inflammation [Recovering/Resolving]
  - Double stranded DNA antibody positive [Not Recovered/Not Resolved]
  - Lip swelling [Recovering/Resolving]
  - Hypersensitivity vasculitis [Not Recovered/Not Resolved]
  - Rash [Recovering/Resolving]
  - Vasculitis [Recovering/Resolving]
  - Antinuclear antibody positive [Not Recovered/Not Resolved]

NARRATIVE: CASE EVENT DATE: 2017
